FAERS Safety Report 24184078 (Version 1)
Quarter: 2024Q3

REPORT INFORMATION
  Report Type: Spontaneous
  Country: AU (occurrence: None)
  Receive Date: 20240807
  Receipt Date: 20240807
  Transmission Date: 20241016
  Serious: Yes (Other)
  Sender: ACCORD
  Company Number: None

PATIENT
  Sex: Female

DRUGS (5)
  1. TACROLIMUS [Suspect]
     Active Substance: TACROLIMUS
     Indication: Product used for unknown indication
  2. CYCLOSPORINE [Concomitant]
     Active Substance: CYCLOSPORINE
  3. METHOTREXATE [Concomitant]
     Active Substance: METHOTREXATE
  4. PREDNISOLONE [Concomitant]
     Active Substance: PREDNISOLONE
  5. RITUXIMAB [Concomitant]
     Active Substance: RITUXIMAB

REACTIONS (2)
  - Thrombotic microangiopathy [Unknown]
  - Drug ineffective for unapproved indication [Unknown]
